FAERS Safety Report 10965873 (Version 3)
Quarter: 2015Q2

REPORT INFORMATION
  Report Type: Other
  Country: IT (occurrence: IT)
  Receive Date: 20150330
  Receipt Date: 20150624
  Transmission Date: 20150821
  Serious: Yes (Other)
  Sender: FDA-Public Use
  Company Number: IT-SUN PHARMACEUTICAL INDUSTRIES LTD-2015SUN00845

PATIENT

DRUGS (5)
  1. OXALIPLATIN. [Suspect]
     Active Substance: OXALIPLATIN
     Indication: RECTAL CANCER METASTATIC
     Dosage: 150 MG CYCLICAL
     Route: 042
     Dates: start: 20140704, end: 20140909
  2. 1-(?-D-5^-DEOSSIRIBOFURANOSIL)-5-FLUOROURACILE [Suspect]
     Active Substance: FLUOROURACIL
     Indication: RECTAL CANCER METASTATIC
     Dosage: 360 MG CYCLICAL
     Route: 040
     Dates: start: 20140704, end: 20140909
  3. ERBITUX [Suspect]
     Active Substance: CETUXIMAB
     Indication: RECTAL CANCER METASTATIC
     Dosage: 450 MG CYCLICAL
     Route: 042
     Dates: start: 20140704, end: 20140909
  4. 1-(?-D-5^-DEOSSIRIBOFURANOSIL)-5-FLUOROURACILE [Suspect]
     Active Substance: FLUOROURACIL
     Dosage: 4320 MG CYCLICAL
     Route: 041
     Dates: start: 20140704, end: 20140909
  5. LEVOFOLINIC ACID (AS DISODIUM LEVOFOLINATE) [Concomitant]
     Indication: RECTAL CANCER METASTATIC
     Dosage: 360 MG
     Route: 042
     Dates: start: 20140704, end: 20140909

REACTIONS (5)
  - Infusion related reaction [Recovered/Resolved]
  - Hypertransaminasaemia [Recovering/Resolving]
  - Gamma-glutamyltransferase increased [None]
  - Hypertensive crisis [Recovered/Resolved]
  - Abdominal pain [Recovering/Resolving]

NARRATIVE: CASE EVENT DATE: 20140722
